FAERS Safety Report 13299620 (Version 3)
Quarter: 2017Q1

REPORT INFORMATION
  Report Type: Spontaneous
  Country: US (occurrence: US)
  Receive Date: 20170306
  Receipt Date: 20170316
  Transmission Date: 20170428
  Serious: Yes (Other)
  Sender: FDA-Public Use
  Company Number: US-TEVA-745049USA

PATIENT
  Age: 35 Year
  Sex: Female

DRUGS (18)
  1. ONDANSETRON [Concomitant]
     Active Substance: ONDANSETRON
  2. TERBINAFINE. [Concomitant]
     Active Substance: TERBINAFINE
  3. TRAMADOL. [Concomitant]
     Active Substance: TRAMADOL
  4. CARBAMAZEPIN [Concomitant]
     Active Substance: CARBAMAZEPINE
  5. BENADRYL [Concomitant]
     Active Substance: DIPHENHYDRAMINE HYDROCHLORIDE
  6. GABAPENTIN. [Concomitant]
     Active Substance: GABAPENTIN
  7. COPAXONE [Suspect]
     Active Substance: GLATIRAMER ACETATE
     Indication: MULTIPLE SCLEROSIS
     Route: 058
     Dates: start: 20140331
  8. NAMENDA [Concomitant]
     Active Substance: MEMANTINE HYDROCHLORIDE
  9. NUEDEXTA [Concomitant]
     Active Substance: DEXTROMETHORPHAN HYDROBROMIDE\QUINIDINE SULFATE
     Dosage: 20-10 MG
  10. TRAMADOL. [Concomitant]
     Active Substance: TRAMADOL
  11. OXYBUTYNIN [Concomitant]
     Active Substance: OXYBUTYNIN
  12. AMANTADINE [Concomitant]
     Active Substance: AMANTADINE
  13. HYDROMORPHONE [Concomitant]
     Active Substance: HYDROMORPHONE
  14. METHADONE [Concomitant]
     Active Substance: METHADONE HYDROCHLORIDE
  15. BACLOFEN. [Concomitant]
     Active Substance: BACLOFEN
  16. LEVETIRACETAM. [Concomitant]
     Active Substance: LEVETIRACETAM
  17. IBUPROFEN. [Concomitant]
     Active Substance: IBUPROFEN
  18. SPIRONOLACTONE. [Concomitant]
     Active Substance: SPIRONOLACTONE

REACTIONS (1)
  - Loss of consciousness [Unknown]

NARRATIVE: CASE EVENT DATE: 20170222
